FAERS Safety Report 11311430 (Version 2)
Quarter: 2015Q3

REPORT INFORMATION
  Report Type: Report from Study
  Country: US (occurrence: US)
  Receive Date: 20150727
  Receipt Date: 20150818
  Transmission Date: 20151125
  Serious: Yes (Hospitalization)
  Sender: FDA-Public Use
  Company Number: US-ABBVIE-15K-163-1432560-00

PATIENT
  Age: 51 Year
  Sex: Male
  Weight: 62.65 kg

DRUGS (4)
  1. IMURAN [Concomitant]
     Active Substance: AZATHIOPRINE
     Indication: PRODUCT USED FOR UNKNOWN INDICATION
  2. CRESTOR [Concomitant]
     Active Substance: ROSUVASTATIN CALCIUM
     Indication: PRODUCT USED FOR UNKNOWN INDICATION
  3. HUMIRA [Suspect]
     Active Substance: ADALIMUMAB
     Indication: CROHN^S DISEASE
     Dosage: DAY ONE
     Route: 058
     Dates: start: 20150626, end: 20150626
  4. APRISO [Concomitant]
     Active Substance: MESALAMINE
     Indication: PRODUCT USED FOR UNKNOWN INDICATION

REACTIONS (8)
  - Muscle spasms [Recovering/Resolving]
  - Renal failure [Recovering/Resolving]
  - Tremor [Recovered/Resolved]
  - Dehydration [Recovering/Resolving]
  - Drug hypersensitivity [Unknown]
  - Rash pustular [Recovering/Resolving]
  - Asthenia [Not Recovered/Not Resolved]
  - Painful defaecation [Not Recovered/Not Resolved]

NARRATIVE: CASE EVENT DATE: 2015
